FAERS Safety Report 4460427-9 (Version None)
Quarter: 2004Q3

REPORT INFORMATION
  Report Type: 
  Country: None (occurrence: None)
  Receive Date: 20040923
  Receipt Date: 20040914
  Transmission Date: 20050211
  Serious: Yes (Death)
  Sender: FDA-Public Use
  Company Number: 2004US001107

PATIENT
  Age: 54 Year
  Sex: Female

DRUGS (6)
  1. PROGRAF [Suspect]
     Indication: RENAL TRANSPLANT
     Dosage: 5.00 MG UID/QD, ORAL
     Route: 048
     Dates: start: 20010223
  2. STUDY CAPS (STUDY CAPS) [Suspect]
     Dosage: 4.00 MG, BID,ORAL
     Route: 048
     Dates: start: 20010222
  3. LOPRESSOR [Concomitant]
  4. REGLAN [Concomitant]
  5. PROTONIX [Concomitant]
  6. OXYCODONE (OXYCODONE) [Concomitant]

REACTIONS (1)
  - NEOPLASM MALIGNANT [None]
